FAERS Safety Report 24533095 (Version 1)
Quarter: 2024Q4

REPORT INFORMATION
  Report Type: Spontaneous
  Country: BR (occurrence: BR)
  Receive Date: 20241022
  Receipt Date: 20241022
  Transmission Date: 20250115
  Serious: Yes (Hospitalization, Other)
  Sender: NOVARTIS
  Company Number: BR-002147023-NVSC2024BR179606

PATIENT
  Age: 70 Year
  Sex: Female
  Weight: 55 kg

DRUGS (14)
  1. EVEROLIMUS [Suspect]
     Active Substance: EVEROLIMUS
     Indication: Breast cancer metastatic
     Dosage: 7.5 MG, QD
     Route: 048
     Dates: start: 20240702, end: 20240812
  2. ELACESTRANT [Suspect]
     Active Substance: ELACESTRANT
     Indication: Breast cancer metastatic
     Dosage: 400 MG, QD
     Route: 048
     Dates: start: 20240702, end: 20240827
  3. MIRTAZAPINE [Concomitant]
     Active Substance: MIRTAZAPINE
     Indication: Decreased appetite
     Dosage: 15 MG, QD
     Route: 048
     Dates: start: 202308
  4. MIRTAZAPINE [Concomitant]
     Active Substance: MIRTAZAPINE
     Dosage: 60 MG, QD
     Route: 048
     Dates: start: 202308
  5. DEXILANT [Concomitant]
     Active Substance: DEXLANSOPRAZOLE
     Indication: Dyspnoea
     Dosage: 30 MG, QD
     Route: 048
     Dates: start: 202308
  6. KETOROLAC [Concomitant]
     Active Substance: KETOROLAC TROMETHAMINE
     Indication: Back pain
     Dosage: 30 MG, TID
     Route: 048
     Dates: start: 202404
  7. METAMIZOLE SODIUM [Concomitant]
     Active Substance: METAMIZOLE SODIUM
     Indication: Spinal pain
     Dosage: 1 G, TID
     Route: 048
     Dates: start: 202404, end: 20240710
  8. METAMIZOLE SODIUM [Concomitant]
     Active Substance: METAMIZOLE SODIUM
     Dosage: 2 MG, QID
     Route: 048
  9. AMITRIPTYLINE HYDROCHLORIDE [Concomitant]
     Active Substance: AMITRIPTYLINE HYDROCHLORIDE
     Indication: Spinal pain
     Dosage: 25 MG, TID
     Route: 048
     Dates: start: 20240702
  10. ACETAMINOPHEN [Concomitant]
     Active Substance: ACETAMINOPHEN
     Indication: Spinal pain
     Dosage: 500 MG, TID
     Route: 048
     Dates: start: 202404, end: 20240701
  11. BUPRENORPHINE [Concomitant]
     Active Substance: BUPRENORPHINE
     Indication: Spinal pain
     Dosage: UNK
     Route: 065
     Dates: start: 20240710
  12. BUPRENORPHINE [Concomitant]
     Active Substance: BUPRENORPHINE
     Dosage: 10 MG, QW
     Route: 062
     Dates: start: 20240719
  13. DIPYRONE [Concomitant]
     Active Substance: DIPYRONE
     Indication: Product used for unknown indication
     Dosage: 500 MG, TID
     Route: 048
     Dates: start: 202404, end: 20240710
  14. DIPYRONE [Concomitant]
     Active Substance: DIPYRONE
     Dosage: 2 G, QID
     Route: 048
     Dates: start: 20240710, end: 20240711

REACTIONS (11)
  - Dehydration [Recovered/Resolved]
  - Fatigue [Recovering/Resolving]
  - Weight decreased [Recovering/Resolving]
  - Mucosal inflammation [Recovering/Resolving]
  - Diarrhoea [Recovered/Resolved]
  - Dry mouth [Not Recovered/Not Resolved]
  - Anaemia [Recovering/Resolving]
  - Aphthous ulcer [Recovering/Resolving]
  - Dyslipidaemia [Recovering/Resolving]
  - Diarrhoea [Recovered/Resolved]
  - Overdose [Recovered/Resolved]

NARRATIVE: CASE EVENT DATE: 20240703
